FAERS Safety Report 8402793-5 (Version None)
Quarter: 2012Q2

REPORT INFORMATION
  Report Type: 
  Country: None (occurrence: None)
  Receive Date: 20120601
  Receipt Date: 20120523
  Transmission Date: 20120825
  Serious: Yes (Hospitalization, Other)
  Sender: FDA-Public Use
  Company Number: US-ABBOTT-12P-163-0939217-00

PATIENT
  Age: 56 Year
  Sex: Female

DRUGS (8)
  1. ADVAIR DISKUS 100/50 [Concomitant]
     Indication: CHRONIC OBSTRUCTIVE PULMONARY DISEASE
  2. VALIUM [Concomitant]
     Indication: INSOMNIA
  3. PNEUMONIA VACCINE [Concomitant]
     Indication: PRODUCT USED FOR UNKNOWN INDICATION
     Dates: start: 20120416, end: 20120416
  4. SPIRIVA [Concomitant]
     Indication: CHRONIC OBSTRUCTIVE PULMONARY DISEASE
  5. HUMIRA [Suspect]
     Indication: RHEUMATOID ARTHRITIS
     Dates: start: 20070101, end: 20110101
  6. SOMA [Concomitant]
     Indication: INSOMNIA
  7. HUMIRA [Suspect]
     Dates: start: 20110101, end: 20120416
  8. INFLUENZA VACCINE [Concomitant]
     Indication: PRODUCT USED FOR UNKNOWN INDICATION
     Dates: start: 20120416, end: 20120416

REACTIONS (12)
  - TOOTH EXTRACTION [None]
  - CEREBRAL ISCHAEMIA [None]
  - HYPERTENSION [None]
  - HEADACHE [None]
  - RASH [None]
  - CHRONIC OBSTRUCTIVE PULMONARY DISEASE [None]
  - PNEUMONIA [None]
  - CEREBRAL ATROPHY [None]
  - PYREXIA [None]
  - CHEST X-RAY ABNORMAL [None]
  - ARTHRALGIA [None]
  - VIRAL INFECTION [None]
